FAERS Safety Report 9754521 (Version 3)
Quarter: 2016Q3

REPORT INFORMATION
  Report Type: Report from Study
  Country: JP (occurrence: JP)
  Receive Date: 20131213
  Receipt Date: 20160719
  Transmission Date: 20161109
  Serious: Yes (Hospitalization, Other)
  Sender: FDA-Public Use
  Company Number: JP-GILEAD-2013-0089706

PATIENT
  Age: 75 Year
  Sex: Female
  Weight: 55 kg

DRUGS (11)
  1. EURODIN                            /00425901/ [Concomitant]
     Active Substance: ESTAZOLAM
     Indication: INSOMNIA
     Route: 048
     Dates: end: 20120716
  2. BAKTAR [Concomitant]
     Active Substance: SULFAMETHOXAZOLE\TRIMETHOPRIM
     Indication: EOSINOPHILIC PNEUMONIA CHRONIC
     Route: 048
     Dates: end: 20120716
  3. AMBRISENTAN [Suspect]
     Active Substance: AMBRISENTAN
     Indication: PULMONARY HYPERTENSION
     Dosage: 5 MG, QD
     Route: 048
     Dates: start: 20120628, end: 20120716
  4. ADALAT [Concomitant]
     Active Substance: NIFEDIPINE
     Route: 048
     Dates: end: 20120716
  5. TADALAFIL [Suspect]
     Active Substance: TADALAFIL
     Indication: PULMONARY HYPERTENSION
     Dosage: UNK
     Route: 048
     Dates: end: 20120716
  6. WARFARIN [Concomitant]
     Active Substance: WARFARIN
     Dosage: UNK
     Route: 048
     Dates: end: 20120716
  7. TRYPTANOL                          /00002202/ [Suspect]
     Active Substance: AMITRIPTYLINE
     Indication: PRODUCT USED FOR UNKNOWN INDICATION
     Route: 048
     Dates: end: 20120716
  8. SELBEX [Concomitant]
     Active Substance: TEPRENONE
     Indication: GASTRITIS PROPHYLAXIS
     Route: 048
     Dates: end: 20120716
  9. PHENOBAL                           /00023201/ [Concomitant]
     Active Substance: PHENOBARBITAL
     Route: 048
     Dates: end: 20120716
  10. TAKEPRON [Concomitant]
     Active Substance: LANSOPRAZOLE
     Indication: GASTRITIS PROPHYLAXIS
     Route: 048
     Dates: end: 20120716
  11. ALEVIATIN                          /00017402/ [Concomitant]
     Active Substance: PHENYTOIN SODIUM
     Route: 048
     Dates: end: 20120716

REACTIONS (4)
  - Malaise [Unknown]
  - Headache [Unknown]
  - Acute respiratory distress syndrome [Unknown]
  - Dyspnoea [Unknown]

NARRATIVE: CASE EVENT DATE: 20120715
